FAERS Safety Report 7113159-2 (Version None)
Quarter: 2010Q4

REPORT INFORMATION
  Report Type: 
  Country: None (occurrence: None)
  Receive Date: 20101119
  Receipt Date: 20101116
  Transmission Date: 20110411
  Serious: Yes (Other)
  Sender: FDA-Public Use
  Company Number: US-AMGEN-USACT2010001889

PATIENT
  Sex: Male

DRUGS (9)
  1. DENOSUMAB [Suspect]
     Indication: METASTASES TO BONE
     Dates: start: 20070309, end: 20100113
  2. LUPRON [Concomitant]
  3. HYDROCHLOROTHIAZIDE [Concomitant]
     Dosage: 25 MG, QD
     Route: 048
     Dates: start: 20090309
  4. CALCIUM [Concomitant]
     Dosage: 1000 MG, QD
     Route: 048
     Dates: start: 20070509
  5. LIPITOR [Concomitant]
     Dosage: 10 MG, QD
     Route: 048
     Dates: start: 20030101
  6. LISINOPRIL [Concomitant]
     Dosage: 40 MG, QD
     Route: 048
     Dates: start: 20030101
  7. ASPIRIN [Concomitant]
     Dosage: 81 MG, QD
     Route: 048
     Dates: start: 20020101
  8. METOPROLOL [Concomitant]
     Dosage: 200 MG, QD
     Route: 048
     Dates: start: 20071001
  9. VITAMIN A [Concomitant]
     Dosage: 400 IU, QD
     Route: 048
     Dates: start: 20070509

REACTIONS (5)
  - BONE DISORDER [None]
  - DENTAL CARIES [None]
  - METASTASES TO BONE [None]
  - OSTEONECROSIS OF JAW [None]
  - WOUND DEHISCENCE [None]
